FAERS Safety Report 4888849-2 (Version None)
Quarter: 2006Q1

REPORT INFORMATION
  Report Type: 
  Country: None (occurrence: None)
  Receive Date: 20060123
  Receipt Date: 20050930
  Transmission Date: 20060701
  Serious: Yes (Death)
  Sender: FDA-Public Use
  Company Number: PR-MERCK-0510USA00874

PATIENT
  Age: 77 Year
  Sex: Female
  Weight: 73 kg

DRUGS (2)
  1. VIOXX [Suspect]
     Indication: PAIN
     Route: 048
     Dates: start: 19990101, end: 20010101
  2. VIOXX [Suspect]
     Indication: OSTEOPOROSIS
     Route: 048
     Dates: start: 19990101, end: 20010101

REACTIONS (7)
  - CARDIAC FAILURE CONGESTIVE [None]
  - DEPRESSION [None]
  - HYPERTENSION [None]
  - MYOCARDIAL INFARCTION [None]
  - SINUSITIS [None]
  - THROMBOSIS [None]
  - UPPER RESPIRATORY TRACT INFECTION [None]
